FAERS Safety Report 5762736-X (Version None)
Quarter: 2008Q2

REPORT INFORMATION
  Report Type: 
  Country: None (occurrence: None)
  Receive Date: 20080527
  Receipt Date: 20071009
  Transmission Date: 20081010
  Serious: Yes (Hospitalization)
  Sender: FDA-Public Use
  Company Number: 249165

PATIENT
  Age: 66 Year
  Sex: Female

DRUGS (2)
  1. HERCEPTIN [Suspect]
     Indication: BREAST CANCER
     Dates: start: 20060101
  2. CHEMOTHERAPY (UNK INGREDIENTS) (ANTINEOPLASTIC AGENT NOS) [Concomitant]

REACTIONS (1)
  - URINARY TRACT INFECTION [None]
